FAERS Safety Report 12137192 (Version 1)
Quarter: 2016Q1

REPORT INFORMATION
  Report Type: Spontaneous
  Country: US (occurrence: US)
  Receive Date: 20160302
  Receipt Date: 20160302
  Transmission Date: 20160526
  Serious: No
  Sender: FDA-Public Use
  Company Number: US-INSYS THERAPEUTICS, INC-INS201509-000379

PATIENT
  Age: 77 Year
  Sex: Female
  Weight: 63.5 kg

DRUGS (7)
  1. OXYCONTIN [Concomitant]
     Active Substance: OXYCODONE HYDROCHLORIDE
  2. SUBSYS [Suspect]
     Active Substance: FENTANYL
     Indication: MYALGIA
  3. OXYCONTIN [Concomitant]
     Active Substance: OXYCODONE HYDROCHLORIDE
     Indication: BREAKTHROUGH PAIN
  4. SUBSYS [Suspect]
     Active Substance: FENTANYL
     Indication: FIBROMYALGIA
  5. SUBSYS [Suspect]
     Active Substance: FENTANYL
     Indication: SPINAL COLUMN STENOSIS
  6. SUBSYS [Suspect]
     Active Substance: FENTANYL
     Indication: NECK PAIN
  7. SUBSYS [Suspect]
     Active Substance: FENTANYL
     Indication: ARTHRITIS

REACTIONS (2)
  - Off label use [Unknown]
  - Constipation [Unknown]
